FAERS Safety Report 10537196 (Version 1)
Quarter: 2014Q4

REPORT INFORMATION
  Report Type: Spontaneous
  Country: CA (occurrence: CA)
  Receive Date: 20141022
  Receipt Date: 20141022
  Transmission Date: 20150529
  Serious: Yes (Death)
  Sender: FDA-Public Use
  Company Number: PHHY2014CA135801

PATIENT
  Age: 3 Month
  Sex: Female

DRUGS (3)
  1. METHADONE [Suspect]
     Active Substance: METHADONE HYDROCHLORIDE
     Indication: OFF LABEL USE
     Route: 065
  2. METHADONE [Suspect]
     Active Substance: METHADONE HYDROCHLORIDE
     Indication: FEELING ABNORMAL
     Route: 064
  3. MORPHINE [Concomitant]
     Active Substance: MORPHINE
     Indication: PRODUCT USED FOR UNKNOWN INDICATION
     Route: 048

REACTIONS (11)
  - Pupil fixed [Fatal]
  - Heart rate increased [Fatal]
  - Brain oedema [Fatal]
  - Brain death [Fatal]
  - Respiratory arrest [Fatal]
  - Pulmonary congestion [Fatal]
  - Foetal exposure during pregnancy [Unknown]
  - Toxicity to various agents [Fatal]
  - Pulmonary oedema [Fatal]
  - Cyanosis [Fatal]
  - Crying [Fatal]
